FAERS Safety Report 9011716 (Version 1)
Quarter: 2013Q1

REPORT INFORMATION
  Report Type: Spontaneous
  Country: US (occurrence: US)
  Receive Date: 20130114
  Receipt Date: 20130114
  Transmission Date: 20140127
  Serious: Yes (Other)
  Sender: FDA-Public Use
  Company Number: US-009507513-0901USA02251

PATIENT
  Age: 21 Month
  Sex: Male
  Weight: 10.89 kg

DRUGS (2)
  1. SINGULAIR [Suspect]
     Indication: FOOD ALLERGY
     Dosage: 4 MG, DAILY AT BEDTIME
     Route: 048
     Dates: start: 20080828, end: 20080909
  2. SINGULAIR [Suspect]
     Indication: HOUSE DUST ALLERGY

REACTIONS (13)
  - Abnormal behaviour [Unknown]
  - Aggression [Unknown]
  - Anxiety [Unknown]
  - Crying [Unknown]
  - Fear [Unknown]
  - Hallucination [Unknown]
  - Mental disorder [Unknown]
  - Panic reaction [Unknown]
  - Screaming [Unknown]
  - Sleep disorder [Unknown]
  - Sleep terror [Unknown]
  - Tension [Unknown]
  - Speech disorder [Unknown]
